FAERS Safety Report 9714394 (Version 1)
Quarter: 2013Q4

REPORT INFORMATION
  Report Type: Spontaneous
  Country: US (occurrence: US)
  Receive Date: 20131126
  Receipt Date: 20131126
  Transmission Date: 20140711
  Serious: No
  Sender: FDA-Public Use
  Company Number: US-009507513-1311USA011253

PATIENT
  Age: 27 Year
  Sex: Female

DRUGS (3)
  1. CLARITIN-D-24 [Suspect]
     Indication: SINUS HEADACHE
     Dosage: UNK, UNKNOWN
     Route: 048
     Dates: start: 201311
  2. CLARITIN-D-24 [Suspect]
     Indication: SINUS HEADACHE
  3. CLARITIN-D-24 [Suspect]
     Indication: PRODUCTIVE COUGH

REACTIONS (1)
  - Drug effect decreased [Unknown]
